FAERS Safety Report 4555846-6 (Version None)
Quarter: 2005Q1

REPORT INFORMATION
  Report Type: 
  Country: None (occurrence: None)
  Receive Date: 20050111
  Receipt Date: 20041025
  Transmission Date: 20050727
  Serious: No
  Sender: FDA-Public Use
  Company Number: 2004S1000245

PATIENT
  Age: 65 Year
  Sex: Male
  Weight: 103.6 kg

DRUGS (8)
  1. CUBICIN [Suspect]
     Indication: DIABETIC FOOT
     Dosage: 4 MG/KG;Q24H;IV
     Route: 042
     Dates: start: 20041007, end: 20041025
  2. CUBICIN [Suspect]
     Indication: STAPHYLOCOCCAL INFECTION
     Dosage: 4 MG/KG;Q24H;IV
     Route: 042
     Dates: start: 20041007, end: 20041025
  3. CARVEDILOL [Concomitant]
  4. GLIMEPIRIDE [Concomitant]
  5. ROSIGLITAZONE [Concomitant]
  6. SERTRALINE HCL [Concomitant]
  7. ACETYLSALICYLIC ACID SRT [Concomitant]
  8. FOLIC ACID [Concomitant]

REACTIONS (1)
  - BLOOD CREATINE PHOSPHOKINASE INCREASED [None]
